FAERS Safety Report 11597955 (Version 1)
Quarter: 2015Q4

REPORT INFORMATION
  Report Type: Spontaneous
  Country: US (occurrence: US)
  Receive Date: 20151006
  Receipt Date: 20151006
  Transmission Date: 20160304
  Serious: No
  Sender: FDA-Public Use
  Company Number: US-ROCHE-1552540

PATIENT
  Sex: Female

DRUGS (8)
  1. NORCO [Concomitant]
     Active Substance: ACETAMINOPHEN\HYDROCODONE BITARTRATE
  2. ERIVEDGE [Suspect]
     Active Substance: VISMODEGIB
     Indication: BASAL CELL CARCINOMA
     Route: 048
     Dates: start: 20140619
  3. METHADONE [Concomitant]
     Active Substance: METHADONE HYDROCHLORIDE
  4. BACITRACIN. [Concomitant]
     Active Substance: BACITRACIN
  5. LYRICA [Concomitant]
     Active Substance: PREGABALIN
  6. LEVOCARNITINE. [Concomitant]
     Active Substance: LEVOCARNITINE
  7. CYMBALTA [Concomitant]
     Active Substance: DULOXETINE HYDROCHLORIDE
  8. HYDROCHLOROTHIAZIDE. [Concomitant]
     Active Substance: HYDROCHLOROTHIAZIDE

REACTIONS (2)
  - Diarrhoea [Unknown]
  - Vomiting [Unknown]
